FAERS Safety Report 14913690 (Version 1)
Quarter: 2018Q2

REPORT INFORMATION
  Report Type: Spontaneous
  Country: US (occurrence: US)
  Receive Date: 20180501
  Receipt Date: 20180501
  Transmission Date: 20180711
  Serious: No
  Sender: FDA-Public Use
  Company Number: None

PATIENT
  Age: 83 Year
  Sex: Female
  Weight: 63.5 kg

DRUGS (18)
  1. LEVOTHYRONE [Concomitant]
  2. CALCIUM CITRATE [Concomitant]
     Active Substance: CALCIUM CITRATE
  3. TOLTERODINE [Concomitant]
     Active Substance: TOLTERODINE
  4. MULTIVITAMIN [Concomitant]
     Active Substance: VITAMINS
  5. AMLODIPINE [Concomitant]
     Active Substance: AMLODIPINE BESYLATE
  6. NAMENDA [Concomitant]
     Active Substance: MEMANTINE HYDROCHLORIDE
  7. PRAVASTATIN. [Concomitant]
     Active Substance: PRAVASTATIN
  8. GABAPENTIN. [Concomitant]
     Active Substance: GABAPENTIN
  9. QUETIAPINE. [Concomitant]
     Active Substance: QUETIAPINE
  10. ATENOL [Concomitant]
     Active Substance: ATENOLOL
  11. BUSPIRONE HCL [Suspect]
     Active Substance: BUSPIRONE HYDROCHLORIDE
     Indication: ANXIETY
     Dosage: 2 PILLS A DAY TWICE DAILY MOUTH
     Route: 048
     Dates: start: 20140326, end: 20180309
  12. HYDROCODON [Concomitant]
     Active Substance: HYDROCODONE
  13. VENLAFAXINE [Concomitant]
     Active Substance: VENLAFAXINE HYDROCHLORIDE
  14. METFORMIN [Concomitant]
     Active Substance: METFORMIN HYDROCHLORIDE
  15. PANTORAZOLE [Concomitant]
  16. DONEPEZIL. [Concomitant]
     Active Substance: DONEPEZIL
  17. NAMEBUTOL [Concomitant]
  18. RALOXIFENE. [Concomitant]
     Active Substance: RALOXIFENE

REACTIONS (2)
  - Insomnia [None]
  - Skin burning sensation [None]

NARRATIVE: CASE EVENT DATE: 20180309
